FAERS Safety Report 25229620 (Version 1)
Quarter: 2025Q2

REPORT INFORMATION
  Report Type: Spontaneous
  Country: CA (occurrence: CA)
  Receive Date: 20250423
  Receipt Date: 20250423
  Transmission Date: 20250716
  Serious: Yes (Other)
  Sender: GRIFOLS
  Company Number: CA-IGSA-BIG0034563

PATIENT
  Age: 77 Year
  Sex: Male

DRUGS (1)
  1. PROLASTIN [Suspect]
     Active Substance: .ALPHA.1-PROTEINASE INHIBITOR HUMAN
     Indication: Alpha-1 antitrypsin deficiency
     Dosage: 5400 MILLIGRAM, Q.10D.
     Route: 042

REACTIONS (1)
  - Rheumatoid arthritis [Not Recovered/Not Resolved]
